FAERS Safety Report 8975261 (Version 1)
Quarter: 2012Q4

REPORT INFORMATION
  Report Type: 
  Country: US (occurrence: US)
  Receive Date: 20121219
  Receipt Date: 20121219
  Transmission Date: 20130627
  Serious: No
  Sender: FDA-Public Use
  Company Number: US-AMGEN-USASP2012074887

PATIENT
  Sex: Female

DRUGS (5)
  1. PROLIA [Suspect]
     Indication: OSTEOPOROSIS
     Dosage: UNK
  2. CALCIUM [Concomitant]
     Dosage: UNK
  3. VITAMIN D /00107901/ [Concomitant]
     Dosage: UNK
  4. CITRACAL                           /00751520/ [Concomitant]
     Dosage: UNK
  5. TUMS                               /00193601/ [Concomitant]

REACTIONS (4)
  - Activities of daily living impaired [Recovered/Resolved]
  - Muscle spasms [Recovered/Resolved]
  - Diaphragmatic disorder [Recovered/Resolved]
  - Back pain [Recovered/Resolved]
